FAERS Safety Report 8622679-0 (Version None)
Quarter: 2012Q3

REPORT INFORMATION
  Report Type: 
  Country: None (occurrence: None)
  Receive Date: 20120827
  Receipt Date: 20120817
  Transmission Date: 20120928
  Serious: Yes (Hospitalization, Other)
  Sender: FDA-Public Use
  Company Number: CA-JNJFOC-20120809589

PATIENT
  Sex: Female
  Weight: 91.8 kg

DRUGS (11)
  1. REMICADE [Suspect]
     Indication: CROHN'S DISEASE
     Route: 042
     Dates: start: 20071024
  2. POTASSIUM [Concomitant]
     Route: 065
  3. CALCIUM [Concomitant]
     Route: 065
  4. ZOPLICONE [Concomitant]
     Route: 065
  5. REMICADE [Suspect]
     Indication: COLITIS
     Route: 042
     Dates: start: 20071024
  6. CRESTON [Concomitant]
     Route: 065
  7. IMURAN [Concomitant]
     Route: 065
  8. RABEPRAZOLE SODIUM [Concomitant]
     Route: 065
  9. IRON [Concomitant]
     Route: 065
  10. METOPROLOL TARTRATE [Concomitant]
     Route: 065
  11. CELEBREX [Concomitant]
     Route: 065

REACTIONS (3)
  - POST PROCEDURAL HAEMORRHAGE [None]
  - HIP SURGERY [None]
  - ATRIAL FIBRILLATION [None]
